FAERS Safety Report 8608700-4 (Version None)
Quarter: 2012Q3

REPORT INFORMATION
  Report Type: 
  Country: None (occurrence: None)
  Receive Date: 20120821
  Receipt Date: 20120814
  Transmission Date: 20120928
  Serious: Yes (Hospitalization)
  Sender: FDA-Public Use
  Company Number: US-FRI-1000036889

PATIENT
  Age: 66 Year
  Sex: Female

DRUGS (2)
  1. SAVELLA [Suspect]
     Indication: FIBROMYALGIA
     Dosage: 25 MG QOD
     Route: 048
     Dates: start: 20110101, end: 20110101
  2. SAVELLA [Suspect]
     Dosage: 25 MG
     Route: 048
     Dates: start: 20110101, end: 20120701

REACTIONS (3)
  - INSOMNIA [None]
  - ORTHOSTATIC HYPOTENSION [None]
  - NERVOUSNESS [None]
